FAERS Safety Report 20947765 (Version 1)
Quarter: 2022Q2

REPORT INFORMATION
  Report Type: Other
  Country: TW (occurrence: None)
  Receive Date: 20220611
  Receipt Date: 20220611
  Transmission Date: 20220721
  Serious: Yes (Other)
  Sender: FDA-Public Use
  Company Number: TW-Square-000067

PATIENT
  Age: 55 Year
  Sex: Female

DRUGS (2)
  1. ARIPIPRAZOLE [Suspect]
     Active Substance: ARIPIPRAZOLE
     Indication: Parkinson^s disease
     Dosage: 20 MG/DAY
     Route: 048
  2. ARIPIPRAZOLE [Suspect]
     Active Substance: ARIPIPRAZOLE
     Indication: Parkinson^s disease
     Dosage: 30 MG/DAY
     Route: 048

REACTIONS (2)
  - Parkinson^s disease [Recovered/Resolved]
  - Condition aggravated [Recovered/Resolved]
